FAERS Safety Report 5076039-2 (Version None)
Quarter: 2006Q3

REPORT INFORMATION
  Report Type: 
  Country: None (occurrence: None)
  Receive Date: 20060809
  Receipt Date: 20060712
  Transmission Date: 20061208
  Serious: Yes (Other)
  Sender: FDA-Public Use
  Company Number: HR-BOEHRINGER INGELHEIM PHARMACEUTICALS, INC.-2006-AP-00335AP

PATIENT
  Age: 66 Year
  Sex: Female

DRUGS (3)
  1. MIRAPEXIN [Suspect]
     Indication: EXTRAPYRAMIDAL DISORDER
     Route: 048
     Dates: start: 20060401, end: 20060401
  2. MIRAPEXIN [Suspect]
     Indication: TREMOR
  3. MADOPAR [Concomitant]
     Indication: EXTRAPYRAMIDAL DISORDER

REACTIONS (2)
  - NAUSEA [None]
  - VOMITING [None]
